FAERS Safety Report 25989113 (Version 1)
Quarter: 2025Q4

REPORT INFORMATION
  Report Type: Spontaneous
  Country: US (occurrence: US)
  Receive Date: 20251103
  Receipt Date: 20251103
  Transmission Date: 20260118
  Serious: Yes (Hospitalization, Disabling)
  Sender: MICRO LABS LIMITED
  Company Number: US-MLMSERVICE-20251017-PI678387-00079-1

PATIENT
  Age: 29 Year
  Sex: Male

DRUGS (4)
  1. FLUOXETINE [Suspect]
     Active Substance: FLUOXETINE HYDROCHLORIDE
     Indication: Product used for unknown indication
  2. NIRMATRELVIR [Suspect]
     Active Substance: NIRMATRELVIR
     Indication: COVID-19
  3. CARBAMAZEPINE [Suspect]
     Active Substance: CARBAMAZEPINE
     Indication: Coffin-Lowry syndrome
  4. RITONAVIR [Suspect]
     Active Substance: RITONAVIR
     Indication: COVID-19

REACTIONS (4)
  - Gait disturbance [Recovering/Resolving]
  - Metabolic alkalosis [Recovering/Resolving]
  - Toxicity to various agents [Recovering/Resolving]
  - Drug interaction [Recovering/Resolving]
